FAERS Safety Report 4927771-X (Version None)
Quarter: 2006Q1

REPORT INFORMATION
  Report Type: 
  Country: None (occurrence: None)
  Receive Date: 20060228
  Receipt Date: 20050804
  Transmission Date: 20060701
  Serious: No
  Sender: FDA-Public Use
  Company Number: US-GLAXOSMITHKLINE-A0568990A

PATIENT

DRUGS (2)
  1. ZIAGEN [Suspect]
     Indication: HIV INFECTION
     Route: 065
     Dates: start: 20050101
  2. MULTIPLE MEDICATIONS [Concomitant]

REACTIONS (3)
  - ABDOMINAL PAIN [None]
  - PYREXIA [None]
  - RASH [None]
